FAERS Safety Report 9053567 (Version 1)
Quarter: 2013Q1

REPORT INFORMATION
  Report Type: Spontaneous
  Country: US (occurrence: US)
  Receive Date: 20130208
  Receipt Date: 20130208
  Transmission Date: 20140127
  Serious: No
  Sender: FDA-Public Use
  Company Number: US-TARO-2012P1012510

PATIENT
  Age: 48 Year
  Sex: Female

DRUGS (1)
  1. NYSTATIN + TRIAMCINOLONE ACETONIDE CREAM USP [Suspect]
     Indication: FUNGAL INFECTION
     Route: 061
     Dates: start: 201204, end: 201204

REACTIONS (2)
  - Skin hypopigmentation [Not Recovered/Not Resolved]
  - Yellow skin [Not Recovered/Not Resolved]
